FAERS Safety Report 18991935 (Version 1)
Quarter: 2021Q1

REPORT INFORMATION
  Report Type: Spontaneous
  Country: US (occurrence: US)
  Receive Date: 20210309
  Receipt Date: 20210309
  Transmission Date: 20210420
  Serious: Yes (Life-Threatening, Hospitalization)
  Sender: FDA-Public Use
  Company Number: None

PATIENT
  Age: 22 Year
  Sex: Female
  Weight: 126.55 kg

DRUGS (1)
  1. ETONOGESTREL 0.12MG/ETHINYL0.45MG ESTRADIOL [Suspect]
     Active Substance: ETHINYL ESTRADIOL\ETONOGESTREL
     Indication: CONTRACEPTION
     Route: 067
     Dates: start: 20170421, end: 20200926

REACTIONS (2)
  - Pulmonary embolism [None]
  - Complication associated with device [None]

NARRATIVE: CASE EVENT DATE: 20200926
